FAERS Safety Report 8208044-9 (Version None)
Quarter: 2012Q1

REPORT INFORMATION
  Report Type: 
  Country: None (occurrence: None)
  Receive Date: 20120314
  Receipt Date: 20120309
  Transmission Date: 20120608
  Serious: Yes (Other)
  Sender: FDA-Public Use
  Company Number: GB-ABBOTT-11P-167-0804790-00

PATIENT
  Age: 43 Year
  Sex: Male

DRUGS (7)
  1. EMTRICITABINE [Concomitant]
     Indication: HIV INFECTION
     Dosage: DAILY DOSE: 200 MILLIGRAM(S)
     Route: 065
     Dates: start: 20070101
  2. ALL OTHER THERAPEUTIC PRODUCTS [Concomitant]
     Dosage: DAILY DOSE: 300 MILLIGRAM(S)
     Route: 065
     Dates: start: 20070101
  3. ALL OTHER THERAPEUTIC PRODUCTS [Concomitant]
     Dosage: DAILY DOSE: 245 MILLIGRAM(S)
     Route: 065
     Dates: start: 20070101
  4. RITONAVIR [Interacting]
     Indication: HIV INFECTION
     Dosage: DAILY DOSE: 100 MILLIGRAM(S)
     Route: 048
     Dates: start: 20070101
  5. ALL OTHER THERAPEUTIC PRODUCTS [Interacting]
     Indication: HIV INFECTION
     Dosage: DAILY DOSE: 800 MILLIGRAM(S)
     Route: 048
     Dates: start: 20070101
  6. ALL OTHER THERAPEUTIC PRODUCTS [Concomitant]
     Dosage: DAILY DOSE: 800 MILLIGRAM(S)
     Route: 065
     Dates: start: 20070101
  7. PERINDOPRIL ERBUMINE [Suspect]
     Indication: HYPERTENSION
     Dosage: DAILY DOSE:  UNKNOWN
     Route: 048
     Dates: start: 20080101, end: 20080101

REACTIONS (4)
  - DRUG INTERACTION [None]
  - MIGRAINE [None]
  - RENAL IMPAIRMENT [None]
  - DRUG LEVEL INCREASED [None]
